FAERS Safety Report 9254344 (Version 1)
Quarter: 2013Q2

REPORT INFORMATION
  Report Type: Spontaneous
  Country: US (occurrence: None)
  Receive Date: 20130422
  Receipt Date: 20130422
  Transmission Date: 20140414
  Serious: Yes (Hospitalization)
  Sender: FDA-Public Use
  Company Number: TPA2013A02831

PATIENT
  Sex: Male

DRUGS (1)
  1. EDARBYCLOR [Suspect]

REACTIONS (2)
  - Renal tubular necrosis [None]
  - Renal failure chronic [None]
